FAERS Safety Report 10048383 (Version 2)
Quarter: 2014Q1

REPORT INFORMATION
  Report Type: Spontaneous
  Country: US (occurrence: US)
  Receive Date: 20140331
  Receipt Date: 20140331
  Transmission Date: 20141002
  Serious: Yes (Other)
  Sender: FDA-Public Use
  Company Number: US-GE HEALTHCARE MEDICAL DIAGNOSTICS-OSCN-PR-0910L-0457

PATIENT
  Age: 9 Year
  Sex: Male

DRUGS (3)
  1. OMNISCAN [Suspect]
     Indication: RENAL TRANSPLANT
     Dosage: 0.1 + 0.3 MMOL/KG
     Route: 065
  2. OMNISCAN [Suspect]
     Indication: DIAGNOSTIC PROCEDURE
     Dosage: 0.3 MMOL/KG
  3. GROWTH HORMONE [Concomitant]

REACTIONS (1)
  - Nephrogenic systemic fibrosis [Unknown]
